FAERS Safety Report 7587888-0 (Version None)
Quarter: 2011Q3

REPORT INFORMATION
  Report Type: 
  Country: None (occurrence: None)
  Receive Date: 20110705
  Receipt Date: 20110627
  Transmission Date: 20111222
  Serious: No
  Sender: FDA-Public Use
  Company Number: US-BIOGENIDEC-2011BI023494

PATIENT
  Age: 57 Year
  Sex: Female

DRUGS (2)
  1. TYSABRI [Suspect]
     Indication: MULTIPLE SCLEROSIS
     Route: 042
     Dates: start: 20101115, end: 20110418
  2. TYSABRI [Suspect]
     Route: 042

REACTIONS (3)
  - MASS [None]
  - PAIN IN EXTREMITY [None]
  - INFUSION SITE PAIN [None]
